FAERS Safety Report 7053058-8 (Version None)
Quarter: 2010Q4

REPORT INFORMATION
  Report Type: 
  Country: None (occurrence: None)
  Receive Date: 20101020
  Receipt Date: 20101007
  Transmission Date: 20110411
  Serious: Yes (Other)
  Sender: FDA-Public Use
  Company Number: JP-JNJFOC-20101002275

PATIENT
  Age: 10 Year

DRUGS (2)
  1. CONCERTA [Suspect]
     Indication: PRODUCT USED FOR UNKNOWN INDICATION
     Route: 048
  2. CONCERTA [Suspect]
     Dosage: TOOK MEDICATION ONLY ON SCHOOL DAYS AND DID NOT TAKE ON SCHOOL HOLIDAYS
     Route: 048

REACTIONS (3)
  - GROWTH RETARDATION [None]
  - HEADACHE [None]
  - VOMITING [None]
